FAERS Safety Report 15439077 (Version 1)
Quarter: 2018Q3

REPORT INFORMATION
  Report Type: Spontaneous
  Country: US (occurrence: US)
  Receive Date: 20180928
  Receipt Date: 20180928
  Transmission Date: 20181010
  Serious: No
  Sender: FDA-Public Use
  Company Number: US-PFIZER INC-2018386779

PATIENT
  Age: 64 Year
  Sex: Female

DRUGS (1)
  1. LATANOPROST. [Suspect]
     Active Substance: LATANOPROST
     Indication: GLAUCOMA
     Dosage: 2 GTT, DAILY(OPHTHALMIC SOLUTION, ONE DROP IN BOTH EYES AT BED TIME)
     Route: 047
     Dates: start: 20170222

REACTIONS (1)
  - Eye irritation [Unknown]
